FAERS Safety Report 4920045-2 (Version None)
Quarter: 2006Q1

REPORT INFORMATION
  Report Type: 
  Country: None (occurrence: None)
  Receive Date: 20060216
  Receipt Date: 20060131
  Transmission Date: 20060701
  Serious: Yes (Hospitalization)
  Sender: FDA-Public Use
  Company Number: FR200602000966

PATIENT
  Age: 50 Year
  Sex: Male

DRUGS (2)
  1. ZYPREXA [Suspect]
     Indication: BIPOLAR DISORDER
     Dosage: SEE IMAGE
     Route: 048
     Dates: end: 20060101
  2. ABILIFY [Concomitant]

REACTIONS (4)
  - CEREBELLAR SYNDROME [None]
  - MANIA [None]
  - SOMNOLENCE [None]
  - WEIGHT INCREASED [None]
